FAERS Safety Report 21862858 (Version 1)
Quarter: 2023Q1

REPORT INFORMATION
  Report Type: Spontaneous
  Country: US (occurrence: US)
  Receive Date: 20230114
  Receipt Date: 20230114
  Transmission Date: 20230418
  Serious: No
  Sender: FDA-Public Use
  Company Number: US-drreddys-SPO/USA/22/0159003

PATIENT
  Age: 69 Year
  Sex: Male

DRUGS (15)
  1. LENALIDOMIDE [Suspect]
     Active Substance: LENALIDOMIDE
     Indication: Plasma cell myeloma
     Dosage: BY MOUTH EVERY DAY FOR 21 DAYS ON THEN 7 DAYS OFF FOR A 28 DAY CYCLE
     Route: 048
     Dates: start: 20221109
  2. CARVEDILOL [Concomitant]
     Active Substance: CARVEDILOL
     Indication: Product used for unknown indication
  3. CETIRIZINE [Concomitant]
     Active Substance: CETIRIZINE HYDROCHLORIDE
     Indication: Product used for unknown indication
  4. PYLERA [Concomitant]
     Active Substance: BISMUTH SUBCITRATE POTASSIUM\METRONIDAZOLE\TETRACYCLINE HYDROCHLORIDE
     Indication: Product used for unknown indication
  5. ACYCLOVIR TAB 800MG [Concomitant]
     Indication: Product used for unknown indication
  6. ALBUTEROL SU NEB [Concomitant]
     Indication: Product used for unknown indication
  7. AMLODIPINE B SUS [Concomitant]
     Indication: Product used for unknown indication
  8. CYMBALTA CPE 60MG [Concomitant]
     Indication: Product used for unknown indication
  9. DICLOFENAC CAP 35MG [Concomitant]
     Indication: Product used for unknown indication
  10. FLONASE ALLE SUS 50MCG/AC [Concomitant]
     Indication: Product used for unknown indication
     Dosage: 50MCG/AC
  11. GABAPENTIN [Concomitant]
     Active Substance: GABAPENTIN
     Indication: Product used for unknown indication
  12. HUMALOG [Concomitant]
     Active Substance: INSULIN LISPRO
     Indication: Product used for unknown indication
     Dosage: 100UNIT/ML
  13. HYDROCHLOROT TA G [Concomitant]
     Indication: Product used for unknown indication
  14. TRESIBA [Concomitant]
     Active Substance: INSULIN DEGLUDEC
     Indication: Product used for unknown indication
     Dosage: 100UNIT/ML
  15. VITAMIN D LIQ [Concomitant]
     Indication: Product used for unknown indication
     Dosage: 10MCG/ML

REACTIONS (1)
  - Product dose omission issue [Unknown]
